FAERS Safety Report 12594502 (Version 1)
Quarter: 2016Q3

REPORT INFORMATION
  Report Type: Spontaneous
  Country: US (occurrence: US)
  Receive Date: 20160726
  Receipt Date: 20160726
  Transmission Date: 20161109
  Serious: No
  Sender: FDA-Public Use
  Company Number: US-UNITED THERAPEUTICS-UNT-2015-016011

PATIENT
  Age: 55 Year
  Sex: Female
  Weight: 63.49 kg

DRUGS (4)
  1. ORENITRAM [Suspect]
     Active Substance: TREPROSTINIL
     Indication: PULMONARY HYPERTENSION
     Dosage: 9.5 MG, TID
     Route: 048
     Dates: start: 20150604
  2. ORENITRAM [Suspect]
     Active Substance: TREPROSTINIL
     Dosage: 9.5 MG, Q8H
     Route: 048
  3. LETAIRIS [Suspect]
     Active Substance: AMBRISENTAN
     Dosage: 5 MG, QD
     Route: 065
  4. LETAIRIS [Suspect]
     Active Substance: AMBRISENTAN
     Indication: PULMONARY HYPERTENSION
     Dosage: 10 MG, QD
     Route: 048
     Dates: start: 20100813

REACTIONS (4)
  - Headache [Recovering/Resolving]
  - Inappropriate schedule of drug administration [Unknown]
  - Paranasal sinus discomfort [Unknown]
  - Nasal congestion [Not Recovered/Not Resolved]

NARRATIVE: CASE EVENT DATE: 20151225
